FAERS Safety Report 12163583 (Version 1)
Quarter: 2016Q1

REPORT INFORMATION
  Report Type: Report from Study
  Country: US (occurrence: US)
  Receive Date: 20160309
  Receipt Date: 20160309
  Transmission Date: 20160526
  Serious: Yes (Other)
  Sender: FDA-Public Use
  Company Number: US-JNJFOC-20160305808

PATIENT
  Sex: Male
  Weight: 119.3 kg

DRUGS (2)
  1. REMICADE [Suspect]
     Active Substance: INFLIXIMAB
     Indication: ANKYLOSING SPONDYLITIS
     Route: 042
     Dates: start: 2014, end: 201602
  2. REMICADE [Suspect]
     Active Substance: INFLIXIMAB
     Indication: SENILE ANKYLOSING VERTEBRAL HYPEROSTOSIS
     Route: 042
     Dates: start: 2014, end: 201602

REACTIONS (6)
  - White blood cell count increased [Unknown]
  - Malaise [Unknown]
  - Systemic lupus erythematosus [Recovering/Resolving]
  - Off label use [Unknown]
  - Candida infection [Recovering/Resolving]
  - Product use issue [Unknown]

NARRATIVE: CASE EVENT DATE: 2014
